FAERS Safety Report 10751148 (Version 1)
Quarter: 2015Q1

REPORT INFORMATION
  Report Type: Spontaneous
  Country: US (occurrence: None)
  Receive Date: 20150126
  Receipt Date: 20150126
  Transmission Date: 20150721
  Serious: Yes (Hospitalization)
  Sender: FDA-Public Use
  Company Number: A-US2014-104770

PATIENT
  Age: 85 Year
  Sex: Female

DRUGS (22)
  1. TRACLEER [Suspect]
     Active Substance: BOSENTAN\BOSENTAN MONOHYDRATE
     Indication: PULMONARY HYPERTENSION
     Route: 048
     Dates: start: 2004
  2. CARDIZEM (DILTIAZEM) [Concomitant]
  3. METFORMIN [Concomitant]
     Active Substance: METFORMIN HYDROCHLORIDE
  4. PRANDIN (REPAGLINIDE) [Concomitant]
  5. ADVAIR DISKUS [Concomitant]
     Active Substance: FLUTICASONE PROPIONATE\SALMETEROL XINAFOATE
  6. VITAMIN D (ERGOCALCIFEROL) [Concomitant]
     Active Substance: ERGOCALCIFEROL
  7. ZANTAC [Concomitant]
     Active Substance: RANITIDINE HYDROCHLORIDE
  8. RIOCIGUAT (RIOCIGUAT) [Suspect]
     Active Substance: RIOCIGUAT
     Indication: PRODUCT USED FOR UNKNOWN INDICATION
     Route: 048
  9. NEUROTIN (GABAPENTIN) [Concomitant]
     Active Substance: GABAPENTIN
  10. VITAMIN C [Concomitant]
     Active Substance: ASCORBIC ACID
  11. COUMADIN [Concomitant]
     Active Substance: WARFARIN SODIUM
  12. SYNTHROID [Concomitant]
     Active Substance: LEVOTHYROXINE SODIUM
  13. DOXYCYCLINE. [Concomitant]
     Active Substance: DOXYCYCLINE
  14. TYVASO [Concomitant]
     Active Substance: TREPROSTINIL
  15. FERROUS SULFATE [Concomitant]
     Active Substance: FERROUS SULFATE\FERROUS SULFATE, DRIED
  16. PROAIR HFA [Concomitant]
     Active Substance: ALBUTEROL SULFATE
  17. TRAMADOL [Concomitant]
     Active Substance: TRAMADOL
  18. OMPERAZOLE [Concomitant]
     Active Substance: OMEPRAZOLE
  19. METOLAZONE. [Concomitant]
     Active Substance: METOLAZONE
  20. FLUTICASONE [Concomitant]
     Active Substance: FLUTICASONE\FLUTICASONE PROPIONATE
  21. MAGNESIUM (MAGNESIUM HYDROXIDE) [Concomitant]
  22. LANTUS [Concomitant]
     Active Substance: INSULIN GLARGINE

REACTIONS (9)
  - Cardiac failure congestive [None]
  - Frequent bowel movements [None]
  - Weight increased [None]
  - Fatigue [None]
  - Vertigo [None]
  - Oedema peripheral [None]
  - Diarrhoea [None]
  - Dizziness [None]
  - Oedema [None]
